FAERS Safety Report 5077878-4 (Version None)
Quarter: 2006Q3

REPORT INFORMATION
  Report Type: 
  Country: None (occurrence: None)
  Receive Date: 20060720
  Receipt Date: 20051216
  Transmission Date: 20061208
  Serious: Yes (Death)
  Sender: FDA-Public Use
  Company Number: 2006MP000055

PATIENT
  Sex: Female

DRUGS (1)
  1. AGGRASTAT [Suspect]
     Dosage: IV
     Route: 042
     Dates: start: 20051205, end: 20051201

REACTIONS (1)
  - HAEMORRHAGE [None]
